FAERS Safety Report 4923998-1 (Version None)
Quarter: 2006Q1

REPORT INFORMATION
  Report Type: 
  Country: None (occurrence: None)
  Receive Date: 20060227
  Receipt Date: 20060216
  Transmission Date: 20060701
  Serious: Yes (Death, Hospitalization)
  Sender: FDA-Public Use
  Company Number: US-JNJFOC-20060104255

PATIENT
  Sex: Male
  Weight: 73.94 kg

DRUGS (16)
  1. INFLIXIMAB [Suspect]
     Indication: RHEUMATOID ARTHRITIS
     Route: 042
  2. SYNTHROID [Concomitant]
  3. NIASPAN [Concomitant]
  4. ACCUPRIL [Concomitant]
  5. NORVASC [Concomitant]
  6. FOLIC ACID [Concomitant]
  7. ALLOPURINOL [Concomitant]
  8. QUINAPRIL [Concomitant]
  9. ASPIRIN [Concomitant]
  10. COZAAR [Concomitant]
  11. ARAVA [Concomitant]
  12. LIPITOR [Concomitant]
  13. ZYRTEC [Concomitant]
  14. FLONASE [Concomitant]
  15. HYDROCODONE BITARTRATE + ACETAMINOPHEN [Concomitant]
  16. HYDROCODONE BITARTRATE + ACETAMINOPHEN [Concomitant]
     Dosage: 5/500, 4 IN 1 DAY

REACTIONS (2)
  - CARDIAC FAILURE [None]
  - CEREBROVASCULAR ACCIDENT [None]
